FAERS Safety Report 19926662 (Version 5)
Quarter: 2022Q1

REPORT INFORMATION
  Report Type: Report from Study
  Country: CA (occurrence: CA)
  Receive Date: 20211006
  Receipt Date: 20220307
  Transmission Date: 20220423
  Serious: Yes (Other)
  Sender: FDA-Public Use
  Company Number: CA-BAUSCH-BL-2021-007844

PATIENT

DRUGS (13)
  1. CONTRAVE [Suspect]
     Active Substance: BUPROPION HYDROCHLORIDE\NALTREXONE HYDROCHLORIDE
     Indication: Weight control
     Dosage: 90 MG/8 MG
     Route: 048
     Dates: start: 2020, end: 2020
  2. CONTRAVE [Suspect]
     Active Substance: BUPROPION HYDROCHLORIDE\NALTREXONE HYDROCHLORIDE
     Dosage: 90 MG/8 MG (2 DOSAGE FORMS,1 IN 12 HR)
     Route: 048
     Dates: start: 20201226
  3. SYNTHROID [Concomitant]
     Active Substance: LEVOTHYROXINE SODIUM
     Indication: Hypothyroidism
     Dosage: 0.75 MG, 1 IN 1 D
     Route: 048
     Dates: start: 202012
  4. SYNTHROID [Concomitant]
     Active Substance: LEVOTHYROXINE SODIUM
     Dosage: 0.1 MG, 1 IN 1 D
     Route: 048
     Dates: start: 202007
  5. ZOLOFT [Concomitant]
     Active Substance: SERTRALINE HYDROCHLORIDE
     Indication: Depression
     Dosage: BEDTIME (75 MG,1 IN 1 D)
     Route: 048
  6. PANTOPRAZOLE [Concomitant]
     Active Substance: PANTOPRAZOLE
     Indication: Gastrooesophageal reflux disease
     Dosage: 40 MG (40 MG,1 IN 1 D)
     Route: 048
  7. PERINDOPRIL [Concomitant]
     Active Substance: PERINDOPRIL
     Indication: Hypertension
     Dosage: 2 MG (2 MG,1 IN 1 D)
     Route: 048
  8. ATORVASTATIN [Concomitant]
     Active Substance: ATORVASTATIN
     Indication: Blood cholesterol increased
     Dosage: BEDTIME (40 MG, 1 IN 1 D)
     Route: 048
  9. ATORVASTATIN [Concomitant]
     Active Substance: ATORVASTATIN
     Indication: Hypertension
  10. METOPROLOL [Concomitant]
     Active Substance: METOPROLOL
     Indication: Hypertension
     Dosage: BEDTIME (75 MG, 1 IN 12 HR)
     Route: 048
  11. ASPIRIN [Concomitant]
     Active Substance: ASPIRIN
     Indication: Cardiac disorder
     Dosage: 81 MG (81 MG,1 IN 1 D)
     Route: 048
  12. VITAMIN D3 [Concomitant]
     Active Substance: CHOLECALCIFEROL
     Indication: Routine health maintenance
     Dosage: 2000 IU (2000 IU,1 IN 1 D)
     Route: 048
  13. LEVOTHYROXINE SODIUM [Concomitant]
     Active Substance: LEVOTHYROXINE SODIUM
     Indication: Hypothyroidism
     Dosage: 0.5 MG (0.5 MG, 1 IN 1 D)
     Route: 048
     Dates: end: 202012

REACTIONS (15)
  - Hallucination, visual [Recovered/Resolved]
  - Irritable bowel syndrome [Not Recovered/Not Resolved]
  - Tooth erosion [Recovered/Resolved]
  - Stress urinary incontinence [Unknown]
  - Productive cough [Unknown]
  - Migraine [Recovered/Resolved]
  - Illness [Recovered/Resolved]
  - Infection transmission via personal contact [Recovered/Resolved]
  - Toothache [Recovered/Resolved]
  - Abnormal dreams [Recovered/Resolved]
  - Dizziness [Recovered/Resolved]
  - Fatigue [Not Recovered/Not Resolved]
  - Headache [Not Recovered/Not Resolved]
  - Vomiting [Unknown]
  - Therapeutic response unexpected [Unknown]

NARRATIVE: CASE EVENT DATE: 20210101
